FAERS Safety Report 6099735-7 (Version None)
Quarter: 2009Q1

REPORT INFORMATION
  Report Type: 
  Country: None (occurrence: None)
  Receive Date: 20090303
  Receipt Date: 20090217
  Transmission Date: 20090719
  Serious: Yes (Other)
  Sender: FDA-Public Use
  Company Number: US-ROCHE-615159

PATIENT
  Age: 79 Year
  Sex: Female

DRUGS (6)
  1. BONIVA [Suspect]
     Indication: OSTEOPOROSIS
     Route: 065
     Dates: start: 20080201
  2. CALCIUM/VITAMIN D [Concomitant]
  3. CLONIDINE [Concomitant]
     Dosage: DOSE: HALF DOSE FORM IN AM AND HALF IN PM
  4. LISINOPRIL [Concomitant]
  5. ALLEGRA [Concomitant]
  6. PRAVASTATIN [Concomitant]

REACTIONS (4)
  - CALCINOSIS [None]
  - LOSS OF CONSCIOUSNESS [None]
  - THYROID DISORDER [None]
  - URINARY TRACT INFECTION [None]
